FAERS Safety Report 7357964-6 (Version None)
Quarter: 2011Q1

REPORT INFORMATION
  Report Type: 
  Country: None (occurrence: None)
  Receive Date: 20110307
  Receipt Date: 20110219
  Transmission Date: 20110831
  Serious: No
  Sender: FDA-Public Use
  Company Number: AECAN201000053

PATIENT

DRUGS (1)
  1. PROLASTIN [Suspect]
     Dosage: IV
     Route: 042

REACTIONS (1)
  - DRUG ADMINISTRATION ERROR [None]
